FAERS Safety Report 10644012 (Version 2)
Quarter: 2014Q4

REPORT INFORMATION
  Report Type: Spontaneous
  Country: JP (occurrence: JP)
  Receive Date: 20141210
  Receipt Date: 20141210
  Transmission Date: 20150529
  Serious: Yes (Life-Threatening)
  Sender: FDA-Public Use
  Company Number: JP-BAYER-2014-162664

PATIENT
  Age: 83 Year
  Sex: Female
  Weight: 42 kg

DRUGS (7)
  1. OMEGACIN [Concomitant]
     Active Substance: BIAPENEM
     Indication: SEPSIS
     Dosage: UNK
     Dates: start: 20141011, end: 20141014
  2. AVELOX [Suspect]
     Active Substance: MOXIFLOXACIN HYDROCHLORIDE
     Indication: SEPSIS
     Dosage: 400 MG, QD
     Route: 048
     Dates: start: 20141019, end: 20141027
  3. AVELOX [Suspect]
     Active Substance: MOXIFLOXACIN HYDROCHLORIDE
     Indication: URINARY TRACT INFECTION
     Dosage: 400 MG, QD
     Route: 048
     Dates: start: 20141010, end: 20141012
  4. OMEGACIN [Concomitant]
     Active Substance: BIAPENEM
     Indication: SEPSIS
     Dosage: 0.3 G, QD
     Route: 042
     Dates: start: 20141020, end: 20141101
  5. MINOCYCLINE HYDROCHLORIDE. [Concomitant]
     Active Substance: MINOCYCLINE HYDROCHLORIDE
     Dosage: UNK
     Dates: start: 20141027
  6. ZOSYN [Concomitant]
     Active Substance: PIPERACILLIN SODIUM\TAZOBACTAM SODIUM
     Indication: SEPSIS
     Dosage: UNK
     Dates: start: 20141008, end: 20141010
  7. OMEGACIN [Concomitant]
     Active Substance: BIAPENEM
     Indication: SEPSIS
     Dosage: UNK
     Dates: start: 20141011, end: 20141014

REACTIONS (6)
  - Disseminated intravascular coagulation [Recovered/Resolved]
  - Electrocardiogram QT prolonged [Recovered/Resolved]
  - Acute kidney injury [Recovering/Resolving]
  - Hypokalaemia [None]
  - Ventricular tachycardia [Recovered/Resolved]
  - Hypocalcaemia [Recovering/Resolving]

NARRATIVE: CASE EVENT DATE: 20141011
